FAERS Safety Report 7183382-X (Version None)
Quarter: 2010Q4

REPORT INFORMATION
  Report Type: 
  Country: None (occurrence: None)
  Receive Date: 20101220
  Receipt Date: 20101220
  Transmission Date: 20110411
  Serious: Yes (Hospitalization)
  Sender: FDA-Public Use
  Company Number: None

PATIENT
  Age: 67 Year
  Sex: Female
  Weight: 63.6 kg

DRUGS (12)
  1. ALTEPLASE 6MG BOLUS THEN 54MG OVER 1 HR [Suspect]
     Indication: PULMONARY EMBOLISM
     Dosage: 6 MG ONCE IV RECENT
     Route: 042
     Dates: start: 20100504
  2. OMNIPAQUE 350 [Suspect]
     Indication: COMPUTERISED TOMOGRAM
     Dosage: 100 ML ONCE IV RECENT
     Route: 042
     Dates: start: 20100504
  3. ABILIFY [Concomitant]
  4. ARIMIDEX [Concomitant]
  5. CENTRUM SILVER [Concomitant]
  6. COREG [Concomitant]
  7. ENALAPRIL [Concomitant]
  8. GLUCOPHAGE [Concomitant]
  9. NORVASC [Concomitant]
  10. OMEPRAZOLE [Concomitant]
  11. TRAZODONE HCL [Concomitant]
  12. VIT D [Concomitant]

REACTIONS (5)
  - ANGIOEDEMA [None]
  - LIP OEDEMA [None]
  - OEDEMA MOUTH [None]
  - RASH [None]
  - SWOLLEN TONGUE [None]
